FAERS Safety Report 4998888-9 (Version None)
Quarter: 2006Q2

REPORT INFORMATION
  Report Type: 
  Country: None (occurrence: None)
  Receive Date: 20060510
  Receipt Date: 20060410
  Transmission Date: 20061013
  Serious: Yes (Disabling, Other)
  Sender: FDA-Public Use
  Company Number: US-MERCK-0604USA01502

PATIENT
  Age: 67 Year
  Sex: Female
  Weight: 59 kg

DRUGS (3)
  1. ZETIA [Suspect]
     Indication: HYPERLIPIDAEMIA
     Route: 048
     Dates: start: 20060224, end: 20060410
  2. ACTONEL [Concomitant]
     Route: 065
  3. VERELAN [Concomitant]
     Route: 065

REACTIONS (1)
  - PHOTOSENSITIVITY REACTION [None]
